FAERS Safety Report 15210764 (Version 2)
Quarter: 2018Q3

REPORT INFORMATION
  Report Type: Spontaneous
  Country: FR (occurrence: FR)
  Receive Date: 20180728
  Receipt Date: 20180809
  Transmission Date: 20181010
  Serious: Yes (Hospitalization, Other)
  Sender: FDA-Public Use
  Company Number: FR-TEVA-2018-FR-931357

PATIENT
  Age: 6 Year
  Sex: Male

DRUGS (23)
  1. PEGASPARGASE [Suspect]
     Active Substance: PEGASPARGASE
     Indication: ACUTE LYMPHOCYTIC LEUKAEMIA
     Dosage: 1087 IU (INTERNATIONAL UNIT) DAILY; 1087.5 IU, UNK
     Route: 065
     Dates: start: 20170113
  2. PEGASPARGASE [Suspect]
     Active Substance: PEGASPARGASE
     Route: 065
     Dates: start: 20161216
  3. METHOTREXATE. [Suspect]
     Active Substance: METHOTREXATE
     Dosage: 4220 MG, UNK,,
     Route: 042
     Dates: start: 20170320, end: 20170510
  4. PEGASPARGASE [Suspect]
     Active Substance: PEGASPARGASE
     Route: 065
     Dates: start: 20161202
  5. CYTARABINE. [Suspect]
     Active Substance: CYTARABINE
     Route: 065
  6. METHOTREXATE. [Suspect]
     Active Substance: METHOTREXATE
     Indication: ACUTE LYMPHOCYTIC LEUKAEMIA
     Dosage: 12 UNK, UNK
     Route: 050
     Dates: start: 20170321, end: 20170511
  7. METHOTREXATE. [Suspect]
     Active Substance: METHOTREXATE
     Route: 042
     Dates: start: 20170426
  8. VINCRISTINE [Suspect]
     Active Substance: VINCRISTINE
     Dosage: 1.25 MG/INJ,
     Route: 065
     Dates: start: 20161219
  9. METHOTREXATE. [Suspect]
     Active Substance: METHOTREXATE
     Route: 042
     Dates: start: 20161203
  10. VINCRISTINE [Suspect]
     Active Substance: VINCRISTINE
     Dosage: 1.25 MG/INJ,
     Route: 065
     Dates: start: 20161205
  11. 6?MERCAPTOPURINE MONOHYDRATE [Suspect]
     Active Substance: MERCAPTOPURINE
     Indication: ACUTE LYMPHOCYTIC LEUKAEMIA
     Dosage: 25 MG, UNK
     Route: 048
     Dates: start: 20170313, end: 20170517
  12. BACTRIM [Concomitant]
     Active Substance: SULFAMETHOXAZOLE\TRIMETHOPRIM
     Indication: GASTROENTERITIS ROTAVIRUS
     Route: 048
     Dates: start: 20161129
  13. VINCRISTINE [Suspect]
     Active Substance: VINCRISTINE
     Dosage: 1.3 MG/INJ,
     Dates: start: 20170113
  14. PEGASPARGASE [Suspect]
     Active Substance: PEGASPARGASE
     Dosage: 1050 IU (INTERNATIONAL UNIT) DAILY;  1X/DAY:QD,
     Route: 065
  15. METHOTREXATE. [Suspect]
     Active Substance: METHOTREXATE
     Dosage: 4220 MG/INJ,
     Route: 042
     Dates: start: 20170403
  16. METHOTREXATE. [Suspect]
     Active Substance: METHOTREXATE
     Dosage: 4550 MG/INJ,
     Route: 042
     Dates: start: 20170510
  17. VINCRISTINE [Suspect]
     Active Substance: VINCRISTINE
     Indication: ACUTE LYMPHOCYTIC LEUKAEMIA
     Dosage: 1.3 MG/INJ
     Route: 065
     Dates: start: 20170120
  18. CYCLOPHOSPHAMIDE. [Suspect]
     Active Substance: CYCLOPHOSPHAMIDE
     Indication: ACUTE LYMPHOCYTIC LEUKAEMIA
     Dosage: 880 MG, UNK
     Route: 065
     Dates: start: 20161230
  19. DEXAMETHASONE. [Suspect]
     Active Substance: DEXAMETHASONE
     Indication: ACUTE LYMPHOCYTIC LEUKAEMIA
     Dosage: UNK
     Route: 065
     Dates: start: 20161128, end: 20161219
  20. METHOTREXATE. [Suspect]
     Active Substance: METHOTREXATE
     Dosage: 4220 MG/INJ,
     Route: 042
     Dates: start: 20170320
  21. METHOTREXATE. [Suspect]
     Active Substance: METHOTREXATE
     Route: 042
     Dates: start: 20161215
  22. VINCRISTINE [Suspect]
     Active Substance: VINCRISTINE
     Dosage: 1.26 MG/INJ,
     Route: 065
     Dates: start: 20161128
  23. VINCRISTINE [Suspect]
     Active Substance: VINCRISTINE
     Dosage: 1.25 MG/INJ
     Dates: start: 20161212

REACTIONS (1)
  - Gastroenteritis rotavirus [Recovered/Resolved]

NARRATIVE: CASE EVENT DATE: 20170417
